FAERS Safety Report 10330935 (Version 1)
Quarter: 2014Q3

REPORT INFORMATION
  Report Type: Spontaneous
  Country: US (occurrence: FR)
  Receive Date: 20140722
  Receipt Date: 20140722
  Transmission Date: 20150326
  Serious: Yes (Disabling, Other)
  Sender: FDA-Public Use
  Company Number: 2014SP004129

PATIENT
  Age: 85 Year
  Sex: Female

DRUGS (3)
  1. BEVACIZUMAB [Suspect]
     Active Substance: BEVACIZUMAB
     Indication: COLON CANCER METASTATIC
     Route: 042
     Dates: start: 20140321, end: 20140321
  2. FLUOROURACIL. [Suspect]
     Active Substance: FLUOROURACIL
     Indication: COLON CANCER METASTATIC
     Route: 042
     Dates: start: 20140321, end: 20140323
  3. FOLINIC ACID [Suspect]
     Active Substance: LEUCOVORIN
     Indication: PRODUCT USED FOR UNKNOWN INDICATION
     Route: 042
     Dates: start: 20140321, end: 20140321

REACTIONS (7)
  - Hemiplegia [Unknown]
  - Haemorrhagic stroke [Unknown]
  - Hemiparesis [Unknown]
  - Metastases to central nervous system [Unknown]
  - Metabolic encephalopathy [Unknown]
  - Brain oedema [Unknown]
  - Malaise [Unknown]

NARRATIVE: CASE EVENT DATE: 20140324
